FAERS Safety Report 7416029-5 (Version None)
Quarter: 2011Q2

REPORT INFORMATION
  Report Type: 
  Country: None (occurrence: None)
  Receive Date: 20110414
  Receipt Date: 20110405
  Transmission Date: 20111010
  Serious: Yes (Hospitalization, Other)
  Sender: FDA-Public Use
  Company Number: PHHY2011TW27772

PATIENT
  Age: 35 Year
  Sex: Female
  Weight: 80 kg

DRUGS (3)
  1. NIFEDIPINE [Concomitant]
     Dosage: 30 MG, UNK
  2. LABETALOL [Suspect]
     Dosage: 400 MG, UNK
  3. HYDRALAZINE [Suspect]
     Indication: HYPERTENSION
     Dosage: 200 MG, UNK

REACTIONS (3)
  - PHAEOCHROMOCYTOMA [None]
  - HYPERTENSION [None]
  - DRUG EXPOSURE DURING PREGNANCY [None]
